FAERS Safety Report 5193873-9 (Version None)
Quarter: 2006Q4

REPORT INFORMATION
  Report Type: 
  Country: None (occurrence: None)
  Receive Date: 20061222
  Receipt Date: 20061214
  Transmission Date: 20070319
  Serious: Yes (Hospitalization, Other)
  Sender: FDA-Public Use
  Company Number: 2005157025

PATIENT
  Age: 27 Year
  Sex: Female

DRUGS (9)
  1. NEURONTIN [Suspect]
     Indication: NERVE INJURY
     Dosage: SEE IMAGE
     Dates: start: 20021226, end: 20040101
  2. NEURONTIN [Suspect]
     Indication: NERVE INJURY
     Dosage: SEE IMAGE
     Dates: start: 20040301, end: 20040601
  3. WELLBUTRIN [Concomitant]
  4. ZOLOFT [Concomitant]
  5. ELAVIL [Concomitant]
  6. ALL OTHER THERAPEUTIC PRODUCTS (ALL OTHER THERAPEUTIC PRODUCTS) [Concomitant]
  7. TRAZODONE HCL [Concomitant]
  8. AMBIEN [Concomitant]
  9. VICODIN [Concomitant]

REACTIONS (4)
  - DRUG INEFFECTIVE [None]
  - INTENTIONAL SELF-INJURY [None]
  - OVERDOSE [None]
  - SUICIDE ATTEMPT [None]
